FAERS Safety Report 17951394 (Version 1)
Quarter: 2020Q2

REPORT INFORMATION
  Report Type: Spontaneous
  Country: US (occurrence: US)
  Receive Date: 20200626
  Receipt Date: 20200626
  Transmission Date: 20200714
  Serious: No
  Sender: FDA-Public Use
  Company Number: US-BEH-2020119157

PATIENT
  Age: 39 Year
  Sex: Female

DRUGS (1)
  1. HIZENTRA [Suspect]
     Active Substance: HUMAN IMMUNOGLOBULIN G
     Indication: SELECTIVE IGG SUBCLASS DEFICIENCY
     Dosage: 25 GRAM, QOW
     Route: 058
     Dates: start: 20200611

REACTIONS (10)
  - Injection site discomfort [Unknown]
  - Injection site pain [Unknown]
  - Haematoma [Unknown]
  - Injection site exfoliation [Unknown]
  - Injection site bruising [Unknown]
  - Injection site extravasation [Unknown]
  - Dermatitis [Unknown]
  - Injection site hyperaesthesia [Unknown]
  - Contusion [Unknown]
  - Skin tightness [Unknown]

NARRATIVE: CASE EVENT DATE: 202006
